FAERS Safety Report 4837663-2 (Version None)
Quarter: 2005Q4

REPORT INFORMATION
  Report Type: 
  Country: None (occurrence: None)
  Receive Date: 20051128
  Receipt Date: 20050927
  Transmission Date: 20060501
  Serious: Yes (Hospitalization, Disabling)
  Sender: FDA-Public Use
  Company Number: US-MERCK-0509USA04401

PATIENT
  Age: 47 Year
  Sex: Male
  Weight: 89 kg

DRUGS (12)
  1. VIOXX [Suspect]
     Indication: BACK INJURY
     Route: 048
     Dates: start: 20011023, end: 20030317
  2. DILTIAZEM HYDROCHLORIDE AND ENALAPRIL MALEATE [Concomitant]
     Route: 065
  3. LIPITOR [Concomitant]
     Route: 065
  4. HYZAAR [Concomitant]
     Route: 065
  5. VIAGRA [Concomitant]
     Route: 065
  6. METHOCARBAMOL [Concomitant]
     Route: 065
  7. TRI-MAX V [Concomitant]
     Route: 065
  8. [THERAPY UNSPECIFIED] [Concomitant]
     Route: 065
  9. PROMETHAZINE [Concomitant]
     Route: 065
  10. CARDIZEM [Concomitant]
     Route: 065
  11. PLAVIX [Concomitant]
     Route: 065
  12. TOPROL-XL [Concomitant]
     Route: 065

REACTIONS (7)
  - ABDOMINAL DISTENSION [None]
  - ACUTE MYOCARDIAL INFARCTION [None]
  - BACK INJURY [None]
  - CHEST PAIN [None]
  - FLUID RETENTION [None]
  - LIMB INJURY [None]
  - SEXUAL DYSFUNCTION [None]
